FAERS Safety Report 14953805 (Version 1)
Quarter: 2018Q2

REPORT INFORMATION
  Report Type: Spontaneous
  Country: US (occurrence: US)
  Receive Date: 20180509
  Receipt Date: 20180509
  Transmission Date: 20180711
  Serious: Yes (Other)
  Sender: FDA-Public Use
  Company Number: None

PATIENT
  Age: 41 Year
  Sex: Female

DRUGS (1)
  1. ASCLERA [Suspect]
     Active Substance: POLIDOCANOL
     Indication: SPIDER VEIN
     Route: 042
     Dates: start: 20180404

REACTIONS (3)
  - Blister [None]
  - Swelling [None]
  - Injection site necrosis [None]

NARRATIVE: CASE EVENT DATE: 20180406
